FAERS Safety Report 21044581 (Version 1)
Quarter: 2022Q3

REPORT INFORMATION
  Report Type: Spontaneous
  Country: US (occurrence: US)
  Receive Date: 20220705
  Receipt Date: 20220705
  Transmission Date: 20221026
  Serious: No
  Sender: FDA-Public Use
  Company Number: US-BRISTOL-MYERS SQUIBB COMPANY-2022-066383

PATIENT
  Age: 72 Year
  Sex: Female

DRUGS (3)
  1. ORENCIA [Suspect]
     Active Substance: ABATACEPT
     Indication: Rheumatoid arthritis
     Dosage: 500MG IV AT WEEK 0, 2,4, THEN EVERY 4 WEEKS THEREAFTER
     Route: 042
     Dates: start: 20220503
  2. ORENCIA [Suspect]
     Active Substance: ABATACEPT
     Indication: Osteoporosis
  3. ORENCIA [Suspect]
     Active Substance: ABATACEPT
     Indication: Arteritis

REACTIONS (1)
  - Mental status changes [Unknown]
